FAERS Safety Report 4537211-0 (Version None)
Quarter: 2004Q4

REPORT INFORMATION
  Report Type: 
  Country: None (occurrence: None)
  Receive Date: 20041223
  Receipt Date: 20041216
  Transmission Date: 20050328
  Serious: Yes (Other)
  Sender: FDA-Public Use
  Company Number: PHBS2004CA16963

PATIENT
  Age: 50 Year
  Sex: Male

DRUGS (1)
  1. FAMVIR [Suspect]
     Indication: HERPES SIMPLEX
     Route: 048

REACTIONS (2)
  - AZOOSPERMIA [None]
  - BLOOD TESTOSTERONE DECREASED [None]
